FAERS Safety Report 18542254 (Version 6)
Quarter: 2022Q3

REPORT INFORMATION
  Report Type: Report from Study
  Country: US (occurrence: US)
  Receive Date: 20201124
  Receipt Date: 20220708
  Transmission Date: 20221026
  Serious: Yes (Other)
  Sender: FDA-Public Use
  Company Number: US-TAKEDA-US202034505

PATIENT
  Sex: Female

DRUGS (2)
  1. HUMAN IMMUNOGLOBULIN G\HYALURONIDASE RECOMBINANT HUMAN [Suspect]
     Active Substance: HUMAN IMMUNOGLOBULIN G\HYALURONIDASE RECOMBINANT HUMAN
     Indication: Primary immunodeficiency syndrome
     Dosage: UNK
     Route: 065
  2. CUTAQUIG [Suspect]
     Active Substance: HUMAN IMMUNOGLOBULIN G
     Indication: Primary immunodeficiency syndrome
     Dosage: UNK
     Route: 065
     Dates: start: 202201

REACTIONS (10)
  - Bronchiectasis [Not Recovered/Not Resolved]
  - Myocardial infarction [Unknown]
  - Infection [Unknown]
  - Streptococcal infection [Unknown]
  - Catheterisation cardiac [Unknown]
  - Anaemia [Unknown]
  - Fall [Unknown]
  - Wrist fracture [Unknown]
  - Inappropriate schedule of product administration [Unknown]
  - Insurance issue [Unknown]
